FAERS Safety Report 7419227-X (Version None)
Quarter: 2011Q2

REPORT INFORMATION
  Report Type: 
  Country: None (occurrence: None)
  Receive Date: 20110415
  Receipt Date: 20110404
  Transmission Date: 20111010
  Serious: Yes (Disabling)
  Sender: FDA-Public Use
  Company Number: JP-BAUSCH-2010BL000449

PATIENT
  Age: 42 Year
  Sex: Male

DRUGS (5)
  1. BETAMETHASONE [Concomitant]
     Route: 047
     Dates: start: 20100125
  2. BETAMETHASONE [Concomitant]
     Route: 047
     Dates: start: 20091110, end: 20100125
  3. NEORAL [Concomitant]
     Route: 048
  4. FLUOCINOLONE ACETONIDE [Suspect]
     Route: 047
     Dates: start: 20061017
  5. HYALEIN [Concomitant]
     Route: 047

REACTIONS (1)
  - CORNEAL PERFORATION [None]
